FAERS Safety Report 7344572-6 (Version None)
Quarter: 2011Q1

REPORT INFORMATION
  Report Type: 
  Country: None (occurrence: None)
  Receive Date: 20110310
  Receipt Date: 20110228
  Transmission Date: 20110831
  Serious: Yes (Hospitalization)
  Sender: FDA-Public Use
  Company Number: JP-ELI_LILLY_AND_COMPANY-JP201011002878

PATIENT
  Sex: Male

DRUGS (2)
  1. ANALGESICS [Concomitant]
     Route: 048
  2. GEMZAR [Suspect]
     Dosage: UNK, UNK
     Route: 042
     Dates: start: 20091125

REACTIONS (6)
  - ALANINE AMINOTRANSFERASE INCREASED [None]
  - BLOOD CHOLESTEROL INCREASED [None]
  - BLOOD TRIGLYCERIDES INCREASED [None]
  - BLOOD BILIRUBIN INCREASED [None]
  - LIVER DISORDER [None]
  - ASPARTATE AMINOTRANSFERASE INCREASED [None]
